FAERS Safety Report 23080368 (Version 4)
Quarter: 2025Q2

REPORT INFORMATION
  Report Type: Spontaneous
  Country: US (occurrence: US)
  Receive Date: 20231018
  Receipt Date: 20250511
  Transmission Date: 20250717
  Serious: No
  Sender: ELI LILLY AND COMPANY
  Company Number: US-ELI_LILLY_AND_COMPANY-US202308005820

PATIENT
  Age: 57 Year
  Sex: Male

DRUGS (8)
  1. TALTZ [Suspect]
     Active Substance: IXEKIZUMAB
     Indication: Psoriasis
     Route: 065
     Dates: start: 20230517
  2. TALTZ [Suspect]
     Active Substance: IXEKIZUMAB
     Indication: Psoriasis
     Route: 065
     Dates: start: 20230517
  3. TALTZ [Suspect]
     Active Substance: IXEKIZUMAB
     Route: 065
  4. TALTZ [Suspect]
     Active Substance: IXEKIZUMAB
     Route: 065
  5. TALTZ [Suspect]
     Active Substance: IXEKIZUMAB
     Route: 065
  6. TALTZ [Suspect]
     Active Substance: IXEKIZUMAB
     Route: 065
  7. TALTZ [Suspect]
     Active Substance: IXEKIZUMAB
     Route: 058
  8. TALTZ [Suspect]
     Active Substance: IXEKIZUMAB
     Route: 058

REACTIONS (5)
  - Product dose omission issue [Unknown]
  - Incorrect dose administered [Unknown]
  - Overdose [Unknown]
  - Injection site haemorrhage [Unknown]
  - Injection site pain [Unknown]
